FAERS Safety Report 10200907 (Version 2)
Quarter: 2014Q2

REPORT INFORMATION
  Report Type: Spontaneous
  Country: JP (occurrence: JP)
  Receive Date: 20140528
  Receipt Date: 20140603
  Transmission Date: 20141212
  Serious: Yes (Death)
  Sender: FDA-Public Use
  Company Number: JP-JNJFOC-20140512488

PATIENT
  Age: 62 Year
  Sex: Male

DRUGS (1)
  1. ONEDURO PATCH [Suspect]
     Indication: CANCER PAIN
     Route: 062

REACTIONS (1)
  - Neoplasm [Fatal]
